FAERS Safety Report 9217097 (Version 2)
Quarter: 2013Q2

REPORT INFORMATION
  Report Type: Spontaneous
  Country: US (occurrence: US)
  Receive Date: 20130408
  Receipt Date: 20130423
  Transmission Date: 20140414
  Serious: No
  Sender: FDA-Public Use
  Company Number: US-TEVA-395783USA

PATIENT
  Age: 65 Year
  Sex: Male
  Weight: 79.9 kg

DRUGS (3)
  1. QNASL [Suspect]
     Indication: RHINITIS ALLERGIC
     Route: 045
     Dates: start: 2013
  2. MVI [Concomitant]
  3. RED YEAST RICE EXTRACT [Concomitant]
     Indication: BLOOD CHOLESTEROL

REACTIONS (4)
  - Epistaxis [Recovered/Resolved]
  - Nasal congestion [Unknown]
  - Rhinorrhoea [Unknown]
  - Drug effect decreased [Unknown]
